FAERS Safety Report 9041083 (Version 1)
Quarter: 2013Q1

REPORT INFORMATION
  Report Type: Spontaneous
  Country: US (occurrence: None)
  Receive Date: 20130124
  Receipt Date: 20130124
  Transmission Date: 20140127
  Serious: Yes (Other)
  Sender: FDA-Public Use
  Company Number: None

PATIENT
  Age: 76 Year
  Sex: Male
  Weight: 103.42 kg

DRUGS (1)
  1. CIPROFLOXACIN HCL 500 MG TADRL 2XDAY FOR 7 DAYS [Suspect]
     Indication: PROSTATE INFECTION
     Dosage: SEPT. 9 -   SEPT . 27TH?5-6 DAYS

REACTIONS (3)
  - Rash [None]
  - Heart rate irregular [None]
  - Rash [None]
